FAERS Safety Report 20647482 (Version 1)
Quarter: 2022Q1

REPORT INFORMATION
  Report Type: Spontaneous
  Country: HR (occurrence: HR)
  Receive Date: 20220329
  Receipt Date: 20220329
  Transmission Date: 20220423
  Serious: Yes (Other)
  Sender: FDA-Public Use
  Company Number: None

PATIENT
  Age: 15 Year
  Sex: Female

DRUGS (2)
  1. ZOLPIDEM TARTRATE [Suspect]
     Active Substance: ZOLPIDEM TARTRATE
     Indication: Product used for unknown indication
     Dosage: 20 DOSAGE FORM, QD (1 DF = 1 TBL)
     Route: 048
     Dates: start: 202111, end: 202111
  2. ALPRAZOLAM [Suspect]
     Active Substance: ALPRAZOLAM
     Indication: Product used for unknown indication
     Dosage: 20 DOSAGE FORM, QD (1 DF = 1 TBL)
     Route: 048
     Dates: start: 202111, end: 202111

REACTIONS (3)
  - Suicide attempt [Unknown]
  - Intentional overdose [Unknown]
  - Somnolence [Unknown]

NARRATIVE: CASE EVENT DATE: 20211101
